FAERS Safety Report 15308524 (Version 2)
Quarter: 2018Q3

REPORT INFORMATION
  Report Type: Report from Study
  Country: US (occurrence: US)
  Receive Date: 20180822
  Receipt Date: 20180912
  Transmission Date: 20181010
  Serious: Yes (Hospitalization, Other)
  Sender: FDA-Public Use
  Company Number: US-GILEAD-2018-0357513

PATIENT
  Age: 35 Year
  Sex: Male

DRUGS (15)
  1. AMBRISENTAN [Suspect]
     Active Substance: AMBRISENTAN
     Indication: HEART DISEASE CONGENITAL
  2. MEDROL [Concomitant]
     Active Substance: METHYLPREDNISOLONE
  3. POTASSIUM CHLORIDE. [Concomitant]
     Active Substance: POTASSIUM CHLORIDE
  4. LASIX [Concomitant]
     Active Substance: FUROSEMIDE
  5. DIGOXIN. [Concomitant]
     Active Substance: DIGOXIN
  6. TOPROL XL [Concomitant]
     Active Substance: METOPROLOL SUCCINATE
  7. VENLAFAXINE [Concomitant]
     Active Substance: VENLAFAXINE HYDROCHLORIDE
  8. SILDENAFIL. [Concomitant]
     Active Substance: SILDENAFIL
  9. VIAGRA [Concomitant]
     Active Substance: SILDENAFIL CITRATE
  10. AMBRISENTAN [Suspect]
     Active Substance: AMBRISENTAN
     Indication: PULMONARY ARTERIAL HYPERTENSION
     Dosage: 10 MG, QD
     Route: 048
     Dates: start: 20130923
  11. ORENITRAM [Concomitant]
     Active Substance: TREPROSTINIL
  12. LOSARTAN POTASSIUM. [Concomitant]
     Active Substance: LOSARTAN POTASSIUM
  13. AMLODIPINE [Concomitant]
     Active Substance: AMLODIPINE BESYLATE
  14. ALLOPURINOL. [Concomitant]
     Active Substance: ALLOPURINOL
  15. TYVASO [Concomitant]
     Active Substance: TREPROSTINIL

REACTIONS (1)
  - Transient ischaemic attack [Recovered/Resolved]

NARRATIVE: CASE EVENT DATE: 201806
